FAERS Safety Report 24669209 (Version 1)
Quarter: 2024Q4

REPORT INFORMATION
  Report Type: Spontaneous
  Country: US (occurrence: US)
  Receive Date: 20241127
  Receipt Date: 20241127
  Transmission Date: 20250114
  Serious: Yes (Other)
  Sender: STRIDES
  Company Number: US-STRIDES ARCOLAB LIMITED-2024SP015241

PATIENT
  Age: 71 Year
  Sex: Female

DRUGS (5)
  1. LETROZOLE [Suspect]
     Active Substance: LETROZOLE
     Indication: Endometrial cancer stage I
     Dosage: UNK, CYCLICAL (RECEIVED 7 CYCLES)
     Route: 065
  2. CARBOPLATIN [Suspect]
     Active Substance: CARBOPLATIN
     Indication: Endometrial cancer stage I
     Dosage: UNK, CYCLICAL (RECEIVED 7 CYCLES)
     Route: 065
  3. PACLITAXEL [Suspect]
     Active Substance: PACLITAXEL
     Indication: Endometrial cancer stage I
     Dosage: UNK, CYCLICAL (RECEIVED 7 CYCLES)
     Route: 065
  4. PEMBROLIZUMAB [Suspect]
     Active Substance: PEMBROLIZUMAB
     Indication: Endometrial cancer stage I
     Dosage: UNK, CYCLICAL (RECEIVED 5 CYCLES; MONOTHERAPY)
     Route: 065
  5. PEMBROLIZUMAB [Suspect]
     Active Substance: PEMBROLIZUMAB
     Dosage: UNK, CYCLICAL (COMPLETED 15?CYCLES ALONG WITH LENVATINIB)
     Route: 065
     Dates: start: 20221031

REACTIONS (2)
  - Malignant neoplasm progression [Recovered/Resolved]
  - Drug ineffective for unapproved indication [Unknown]
